FAERS Safety Report 23191501 (Version 1)
Quarter: 2023Q4

REPORT INFORMATION
  Report Type: Spontaneous
  Country: US (occurrence: None)
  Receive Date: 20231115
  Receipt Date: 20231115
  Transmission Date: 20240109
  Serious: Yes (Hospitalization)
  Sender: FDA-Public Use
  Company Number: None

PATIENT
  Sex: Female

DRUGS (9)
  1. GLATOPA [Suspect]
     Active Substance: GLATIRAMER ACETATE
     Dosage: FREQUENCY : 3 TIMES A WEEK;?
     Route: 058
  2. MODERNA COVID-19 VACCINE [Suspect]
     Active Substance: ELASOMERAN
  3. COLLAGENASE POW [Concomitant]
  4. MAGNESIUM TAB [Concomitant]
  5. MULTIVITAMIN TAB WOMENS [Concomitant]
  6. OMEPRAZOLE TAB [Concomitant]
  7. RIBOFLAVIN CAP [Concomitant]
  8. VITAMIN D3 CAP [Concomitant]
  9. BIOTIN CAP [Concomitant]

REACTIONS (4)
  - Multiple sclerosis relapse [None]
  - Fatigue [None]
  - Loss of consciousness [None]
  - Immunisation reaction [None]
